FAERS Safety Report 19415470 (Version 1)
Quarter: 2021Q2

REPORT INFORMATION
  Report Type: Spontaneous
  Country: US (occurrence: US)
  Receive Date: 20210615
  Receipt Date: 20210615
  Transmission Date: 20210717
  Serious: No
  Sender: FDA-Public Use
  Company Number: US-ALLERGAN-2113210US

PATIENT
  Age: 33 Year
  Sex: Female

DRUGS (5)
  1. KYBELLA [Suspect]
     Active Substance: DEOXYCHOLIC ACID
     Indication: LIPOLYSIS PROCEDURE
     Dosage: UNK, SINGLE (2 VIALS)
     Route: 058
     Dates: start: 20210320, end: 20210320
  2. CITALOPRAM HYDROBROMIDE UNK [Concomitant]
     Active Substance: CITALOPRAM HYDROBROMIDE
     Dosage: UNK
  3. ATORVASTATIN [Concomitant]
     Active Substance: ATORVASTATIN
     Dosage: UNK
  4. LAMOTRIGINE. [Concomitant]
     Active Substance: LAMOTRIGINE
     Dosage: UNK
  5. TRIAMTERENE. [Concomitant]
     Active Substance: TRIAMTERENE
     Dosage: UNK

REACTIONS (2)
  - Somnolence [Not Recovered/Not Resolved]
  - Fatigue [Not Recovered/Not Resolved]

NARRATIVE: CASE EVENT DATE: 20210320
